FAERS Safety Report 23774572 (Version 1)
Quarter: 2024Q2

REPORT INFORMATION
  Report Type: Spontaneous
  Country: FR (occurrence: FR)
  Receive Date: 20240423
  Receipt Date: 20240423
  Transmission Date: 20240715
  Serious: Yes (Hospitalization, Other)
  Sender: FDA-Public Use
  Company Number: None

PATIENT
  Age: 44 Year
  Sex: Male
  Weight: 95 kg

DRUGS (3)
  1. ASPIRIN DL-LYSINE [Suspect]
     Active Substance: ASPIRIN DL-LYSINE
     Indication: Prophylaxis
     Dosage: 100MG, QD
     Route: 042
     Dates: start: 20240318, end: 20240319
  2. LOVENOX [Suspect]
     Active Substance: ENOXAPARIN SODIUM
     Indication: Prophylaxis
     Dosage: 2 DF, QD(4,000IU ANTI-XA/0.4 ML, SOLUTION FOR INJECTION IN PRE-FILLED SYRINGES)
     Route: 042
     Dates: start: 20240318, end: 20240319
  3. URAPIDIL [Concomitant]
     Active Substance: URAPIDIL
     Indication: Product used for unknown indication
     Dosage: 5 MG, QH
     Route: 042
     Dates: start: 20240317, end: 20240327

REACTIONS (2)
  - Drug interaction [Not Recovered/Not Resolved]
  - Haemorrhagic transformation stroke [Not Recovered/Not Resolved]

NARRATIVE: CASE EVENT DATE: 20240319
